FAERS Safety Report 9805175 (Version 2)
Quarter: 2014Q1

REPORT INFORMATION
  Report Type: Spontaneous
  Country: US (occurrence: US)
  Receive Date: 20140109
  Receipt Date: 20140311
  Transmission Date: 20141002
  Serious: Yes (Other)
  Sender: FDA-Public Use
  Company Number: US-BRISTOL-MYERS SQUIBB COMPANY-19966852

PATIENT
  Age: 82 Year
  Sex: Male
  Weight: 92.51 kg

DRUGS (1)
  1. ELIQUIS [Suspect]
     Indication: ATRIAL FIBRILLATION
     Route: 048

REACTIONS (4)
  - Atrial fibrillation [Unknown]
  - Nasopharyngitis [Unknown]
  - Pain [Unknown]
  - Sleep disorder [Unknown]
